FAERS Safety Report 7091009-0 (Version None)
Quarter: 2010Q4

REPORT INFORMATION
  Report Type: 
  Country: None (occurrence: None)
  Receive Date: 20101109
  Receipt Date: 20101102
  Transmission Date: 20110411
  Serious: Yes (Other)
  Sender: FDA-Public Use
  Company Number: DE-SANOFI-AVENTIS-2010SA066026

PATIENT
  Sex: Male

DRUGS (4)
  1. MULTAQ [Suspect]
     Route: 065
  2. RAMIPRIL [Concomitant]
     Route: 065
  3. DUOPLAVIN [Concomitant]
     Route: 065
  4. BISOPROLOL [Concomitant]
     Route: 065

REACTIONS (2)
  - ARRHYTHMIA [None]
  - ATRIAL FIBRILLATION [None]
